FAERS Safety Report 18696603 (Version 1)
Quarter: 2021Q1

REPORT INFORMATION
  Report Type: Spontaneous
  Country: US (occurrence: US)
  Receive Date: 20210104
  Receipt Date: 20210104
  Transmission Date: 20210419
  Serious: Yes (Life-Threatening)
  Sender: FDA-Public Use
  Company Number: US-ROCHE-2564671

PATIENT
  Age: 91 Year
  Sex: Male

DRUGS (2)
  1. ACTIVASE [Suspect]
     Active Substance: ALTEPLASE
     Indication: ISCHAEMIC STROKE
     Dosage: 7.74 MG BOLUS ONGOING: NO
     Route: 040
     Dates: start: 20200302, end: 20200302
  2. ACTIVASE [Suspect]
     Active Substance: ALTEPLASE
     Dosage: ONGOING NO
     Route: 041
     Dates: start: 20200302, end: 20200302

REACTIONS (1)
  - Cerebral haemorrhage [Not Recovered/Not Resolved]

NARRATIVE: CASE EVENT DATE: 20200303
